FAERS Safety Report 13390783 (Version 1)
Quarter: 2017Q1

REPORT INFORMATION
  Report Type: Spontaneous
  Country: US (occurrence: DE)
  Receive Date: 20170331
  Receipt Date: 20170331
  Transmission Date: 20170429
  Serious: Yes (Other)
  Sender: FDA-Public Use
  Company Number: US-SUNOVION-2017SUN001350

PATIENT

DRUGS (1)
  1. INDACATEROL AND GLYCOPYRROLATE [Suspect]
     Active Substance: GLYCOPYRROLATE\INDACATEROL MALEATE
     Indication: PRODUCT USED FOR UNKNOWN INDICATION
     Dosage: 1 DF, QD
     Route: 065

REACTIONS (5)
  - Cardiac discomfort [Unknown]
  - Swelling face [Unknown]
  - Flushing [Unknown]
  - Nausea [Unknown]
  - Muscle spasms [Unknown]

NARRATIVE: CASE EVENT DATE: 20170227
